FAERS Safety Report 7201934-5 (Version None)
Quarter: 2010Q4

REPORT INFORMATION
  Report Type: 
  Country: None (occurrence: None)
  Receive Date: 20101229
  Receipt Date: 20101222
  Transmission Date: 20110411
  Serious: Yes (Death, Other)
  Sender: FDA-Public Use
  Company Number: AU-PFIZER INC-2010166506

PATIENT
  Age: 74 Year
  Sex: Female
  Weight: 101.6 kg

DRUGS (2)
  1. LIPITOR [Suspect]
     Indication: BLOOD CHOLESTEROL INCREASED
     Dosage: HIGH DOSE
     Route: 048
  2. LIPITOR [Suspect]
     Indication: LIPIDS INCREASED

REACTIONS (6)
  - CEREBROVASCULAR ACCIDENT [None]
  - DRUG TOXICITY [None]
  - HEPATIC FAILURE [None]
  - JAUNDICE [None]
  - MALAISE [None]
  - MYOCARDIAL INFARCTION [None]
